FAERS Safety Report 23389947 (Version 2)
Quarter: 2025Q4

REPORT INFORMATION
  Report Type: Spontaneous
  Country: US (occurrence: US)
  Receive Date: 20240111
  Receipt Date: 20251015
  Transmission Date: 20260117
  Serious: No
  Sender: SANOFI AVENTIS
  Company Number: US-SA-SAC20240108000105

PATIENT
  Age: 65 Year
  Sex: Male
  Weight: 67.99 kg

DRUGS (1)
  1. DUPIXENT [Suspect]
     Active Substance: DUPILUMAB
     Indication: Dermatitis atopic
     Dosage: 300 MG, QOW
     Route: 058
     Dates: start: 2020, end: 202310

REACTIONS (4)
  - Fatigue [Recovered/Resolved]
  - Pruritus [Unknown]
  - Product dose omission issue [Unknown]
  - Herpes zoster [Unknown]

NARRATIVE: CASE EVENT DATE: 20231001
